FAERS Safety Report 25395986 (Version 4)
Quarter: 2025Q3

REPORT INFORMATION
  Report Type: Spontaneous
  Country: CN (occurrence: CN)
  Receive Date: 20250604
  Receipt Date: 20250816
  Transmission Date: 20251021
  Serious: Yes (Other)
  Sender: GLAXOSMITHKLINE
  Company Number: CN-GSK-CN2025APC066233

PATIENT
  Age: 40 Year
  Sex: Female
  Weight: 51.5 kg

DRUGS (6)
  1. LAMICTAL [Suspect]
     Active Substance: LAMOTRIGINE
     Indication: Epilepsy
     Dosage: 25 MG, QD ONE-THIRD TABLET
  2. LAMICTAL [Suspect]
     Active Substance: LAMOTRIGINE
     Dosage: UNK, BID ONE-THIRD TABLETS AT 7 AM, AND ONE-THIRD TABLETS AT 7 PM
  3. LAMICTAL [Suspect]
     Active Substance: LAMOTRIGINE
  4. LAMICTAL [Suspect]
     Active Substance: LAMOTRIGINE
  5. LAMICTAL [Suspect]
     Active Substance: LAMOTRIGINE
     Dosage: 50MG 3/4 TABLET, BID
  6. LEVETIRACETAM [Suspect]
     Active Substance: LEVETIRACETAM
     Indication: Epilepsy

REACTIONS (9)
  - Epilepsy [Unknown]
  - Coma [Recovered/Resolved]
  - Insomnia [Unknown]
  - Abnormal dreams [Unknown]
  - Wrong technique in product usage process [Unknown]
  - Incorrect dose administered [Unknown]
  - Product prescribing error [Unknown]
  - Drug ineffective [Unknown]
  - Product complaint [Unknown]

NARRATIVE: CASE EVENT DATE: 20250201
